FAERS Safety Report 15660486 (Version 2)
Quarter: 2018Q4

REPORT INFORMATION
  Report Type: Spontaneous
  Country: JP (occurrence: JP)
  Receive Date: 20181127
  Receipt Date: 20181228
  Transmission Date: 20190205
  Serious: Yes (Other)
  Sender: FDA-Public Use
  Company Number: JP-GLAXOSMITHKLINE-JP2018JPN201028

PATIENT
  Age: 79 Year
  Sex: Male
  Weight: 62 kg

DRUGS (7)
  1. AVOLVE [Suspect]
     Active Substance: DUTASTERIDE
     Indication: BENIGN PROSTATIC HYPERPLASIA
     Dosage: 0.5 MG, QD
     Route: 048
     Dates: end: 20181105
  2. ENALAPRIL MALEATE TABLETS [Concomitant]
     Indication: HYPERTENSION
     Dosage: 5 MG, QD
     Route: 048
  3. URIEF [Concomitant]
     Active Substance: SILODOSIN
     Indication: BENIGN PROSTATIC HYPERPLASIA
     Dosage: 4 MG, BID
     Route: 048
  4. MAGMITT TABLET [Concomitant]
     Dosage: 1320 MG, BID
     Route: 048
  5. BETANIS TABLETS [Concomitant]
     Indication: BENIGN PROSTATIC HYPERPLASIA
     Dosage: 50 MG, QD
     Route: 048
  6. ROSUVASTATIN CALCIUM TABLETS [Concomitant]
     Active Substance: ROSUVASTATIN CALCIUM
     Indication: HYPERCHOLESTEROLAEMIA
     Dosage: 2.5 MG, QD
     Route: 048
  7. LANSOPRAZOLE-OD TABLETS [Concomitant]
     Dosage: 15 MG, QD
     Route: 048

REACTIONS (2)
  - Cerebral infarction [Unknown]
  - Breast mass [Unknown]

NARRATIVE: CASE EVENT DATE: 201810
